FAERS Safety Report 14621133 (Version 3)
Quarter: 2018Q2

REPORT INFORMATION
  Report Type: Report from Study
  Country: CA (occurrence: CA)
  Receive Date: 20180310
  Receipt Date: 20180508
  Transmission Date: 20180711
  Serious: Yes (Other)
  Sender: FDA-Public Use
  Company Number: CA-BRISTOL-MYERS SQUIBB COMPANY-BMS-2018-018779

PATIENT
  Sex: Female

DRUGS (1)
  1. ABATACEPT [Suspect]
     Active Substance: ABATACEPT
     Indication: RHEUMATOID ARTHRITIS
     Dosage: 125 MG, QWK
     Route: 058
     Dates: start: 20180221

REACTIONS (5)
  - Limb discomfort [Recovered/Resolved]
  - Fatigue [Unknown]
  - Gait inability [Recovered/Resolved]
  - Glaucoma [Unknown]
  - Eye infection [Recovered/Resolved]
